FAERS Safety Report 16444317 (Version 1)
Quarter: 2019Q3

REPORT INFORMATION
  Report Type: Spontaneous
  Country: US (occurrence: US)
  Receive Date: 20190613
  Receipt Date: 20190613
  Transmission Date: 20191004
  Serious: No
  Sender: FDA-Public Use
  Company Number: None

PATIENT
  Age: 5 Day
  Sex: Female
  Weight: .96 kg

DRUGS (1)
  1. MULTITRACE-4 [Suspect]
     Active Substance: CHROMIC CHLORIDE\CUPRIC SULFATE\MANGANESE SULFATE\ZINC SULFATE HEPTAHYDRATE
     Indication: PREMATURE BABY
     Route: 042

REACTIONS (2)
  - Product name confusion [None]
  - Product preparation error [None]

NARRATIVE: CASE EVENT DATE: 20190607
